FAERS Safety Report 5892759-1 (Version None)
Quarter: 2008Q3

REPORT INFORMATION
  Report Type: 
  Country: None (occurrence: None)
  Receive Date: 20080919
  Receipt Date: 20080919
  Transmission Date: 20090109
  Serious: No
  Sender: FDA-Public Use
  Company Number: None

PATIENT
  Sex: Female
  Weight: 52.1637 kg

DRUGS (1)
  1. LAMOTRIGINE [Suspect]
     Indication: EPILEPSY
     Dosage: 1 200MG TABLET AM + PM
     Dates: start: 20080828, end: 20080915

REACTIONS (5)
  - ABNORMAL BEHAVIOUR [None]
  - CONVULSION [None]
  - FATIGUE [None]
  - MEMORY IMPAIRMENT [None]
  - PHARMACEUTICAL PRODUCT COMPLAINT [None]
